FAERS Safety Report 5586068-8 (Version None)
Quarter: 2008Q1

REPORT INFORMATION
  Report Type: 
  Country: None (occurrence: None)
  Receive Date: 20080107
  Receipt Date: 20071227
  Transmission Date: 20080703
  Serious: Yes (Hospitalization)
  Sender: FDA-Public Use
  Company Number: 2007BI024878

PATIENT
  Age: 51 Year
  Sex: Male

DRUGS (8)
  1. TYSABRI [Suspect]
     Indication: MULTIPLE SCLEROSIS
     Dosage: 300 MG;QM;IV
     Route: 042
     Dates: start: 20060928, end: 20070905
  2. NEURONTIN [Concomitant]
  3. MIRAPEX [Concomitant]
  4. LAMICTAL [Concomitant]
  5. PROVIGIL [Concomitant]
  6. ZOCOR [Concomitant]
  7. FLUVOXAMINE MALEATE [Concomitant]
  8. VIAGRA [Concomitant]

REACTIONS (4)
  - LUNG INFILTRATION [None]
  - LYMPHOCYTE PERCENTAGE INCREASED [None]
  - NEUTROPENIC SEPSIS [None]
  - WHITE BLOOD CELL COUNT DECREASED [None]
